FAERS Safety Report 23315881 (Version 2)
Quarter: 2024Q1

REPORT INFORMATION
  Report Type: Report from Study
  Country: CN (occurrence: CN)
  Receive Date: 20231219
  Receipt Date: 20240117
  Transmission Date: 20240410
  Serious: No
  Sender: FDA-Public Use
  Company Number: CN-PFIZER INC-PV202300202948

PATIENT
  Age: 96 Year
  Sex: Male

DRUGS (6)
  1. NIRMATRELVIR\RITONAVIR [Suspect]
     Active Substance: NIRMATRELVIR\RITONAVIR
     Indication: COVID-19 treatment
     Dosage: [NIRMATRELVIR 300 MG]/[RITONAVIR 100 MG], 2X/DAY
     Route: 048
     Dates: start: 20220429, end: 20220508
  2. POTASSIUM CHLORIDE [Concomitant]
     Active Substance: POTASSIUM CHLORIDE
     Indication: Mineral supplementation
     Dosage: UNK
     Route: 042
     Dates: start: 20220508, end: 20220508
  3. ENTERAL NUTRITIONAL SUSPENSION (SP) [Concomitant]
     Indication: Supplementation therapy
     Dosage: UNK, NASOGASTRIC
     Dates: start: 20220508, end: 20220509
  4. MOXIFLOXACIN HYDROCHLORIDE [Concomitant]
     Active Substance: MOXIFLOXACIN HYDROCHLORIDE\MOXIFLOXACIN HYDROCHLORIDE MONOHYDRATE
     Indication: Anti-infective therapy
     Dosage: UNK
     Route: 042
     Dates: start: 20220508, end: 20220508
  5. OMEPRAZOLE SODIUM [Concomitant]
     Active Substance: OMEPRAZOLE SODIUM
     Indication: Prophylaxis
     Dosage: UNK
     Route: 042
     Dates: start: 20220508, end: 20220509
  6. LACTULOSE [Concomitant]
     Active Substance: LACTULOSE
     Indication: Drug therapy
     Dosage: UNK
     Route: 048
     Dates: start: 20220503, end: 202205

REACTIONS (1)
  - Overdose [Unknown]
